FAERS Safety Report 8416733-6 (Version None)
Quarter: 2012Q2

REPORT INFORMATION
  Report Type: 
  Country: None (occurrence: None)
  Receive Date: 20120606
  Receipt Date: 20120601
  Transmission Date: 20120825
  Serious: Yes (Hospitalization)
  Sender: FDA-Public Use
  Company Number: GB-PFIZER INC-2012131912

PATIENT
  Age: 69 Year
  Sex: Female

DRUGS (2)
  1. CETIRIZINE [Concomitant]
  2. AMLODIPINE BESYLATE [Suspect]
     Indication: HYPERTENSION
     Route: 048
     Dates: start: 20120427, end: 20120502

REACTIONS (2)
  - CONVULSION [None]
  - HEADACHE [None]
